FAERS Safety Report 8379897-9 (Version None)
Quarter: 2012Q2

REPORT INFORMATION
  Report Type: 
  Country: None (occurrence: None)
  Receive Date: 20120523
  Receipt Date: 20120514
  Transmission Date: 20120825
  Serious: Yes (Hospitalization, Other)
  Sender: FDA-Public Use
  Company Number: AU-ASTRAZENECA-2012SE30827

PATIENT
  Age: 0 Day
  Sex: Male

DRUGS (6)
  1. SEROQUEL XR [Suspect]
     Indication: PSYCHOTIC DISORDER
     Dosage: 25-450 MG/DAY STARTED AT 26/40 WEEK AND ONGOING
     Route: 064
  2. CITALOPRAM HYDROBROMIDE [Suspect]
     Indication: ANTIDEPRESSANT THERAPY
     Dosage: PREPREGNANCY
     Route: 064
  3. FERROGRAD C [Concomitant]
     Indication: VITAMIN C
     Dosage: STARTED AT FIRST TRIMESTER
     Route: 064
     Dates: end: 20110821
  4. VITAMIN B COMPLEX CAP [Concomitant]
     Indication: VITAMIN B COMPLEX DEFICIENCY
     Dosage: STARTED AT FIRST TRIMESTER
     Route: 064
     Dates: end: 20110821
  5. FISH OIL [Concomitant]
     Indication: MEDICAL DIET
     Dosage: STARTED AT FIRST TRIMESTER
     Route: 064
     Dates: end: 20110821
  6. BLACKMORES P+BF [Concomitant]
     Indication: VITAMIN SUPPLEMENTATION
     Dosage: STARTED AT FIRST TRIMESTER
     Route: 064
     Dates: end: 20110821

REACTIONS (1)
  - DRUG WITHDRAWAL SYNDROME NEONATAL [None]
